FAERS Safety Report 5599936-8 (Version None)
Quarter: 2008Q1

REPORT INFORMATION
  Report Type: 
  Country: None (occurrence: None)
  Receive Date: 20080123
  Receipt Date: 20080116
  Transmission Date: 20080703
  Serious: Yes (Other)
  Sender: FDA-Public Use
  Company Number: JP-AVENTIS-200713470JP

PATIENT
  Age: 51 Year
  Sex: Male

DRUGS (1)
  1. AMARYL [Suspect]
     Route: 048
     Dates: start: 20040101

REACTIONS (1)
  - BLOOD CREATINE PHOSPHOKINASE INCREASED [None]
